FAERS Safety Report 5420047-6 (Version None)
Quarter: 2007Q3

REPORT INFORMATION
  Report Type: 
  Country: None (occurrence: None)
  Receive Date: 20070815
  Receipt Date: 20070731
  Transmission Date: 20080115
  Serious: Yes (Hospitalization)
  Sender: FDA-Public Use
  Company Number: 2007-161559-NL

PATIENT
  Age: 29 Year
  Sex: Female

DRUGS (5)
  1. FOLLITROPIN BETA [Suspect]
     Indication: OVARIAN HYPERSTIMULATION SYNDROME
     Dosage: 100 UG/150 IU
     Route: 058
     Dates: start: 20070511, end: 20070511
  2. FOLLITROPIN BETA [Suspect]
     Indication: OVARIAN HYPERSTIMULATION SYNDROME
     Dosage: 100 UG/150 IU
     Route: 058
     Dates: start: 20070511, end: 20070517
  3. GANIRELIX ACETATE INJECTION [Concomitant]
  4. CHORIONIC GONADOTROPIN [Concomitant]
  5. PROGESTERONE [Concomitant]

REACTIONS (3)
  - ABORTION INDUCED [None]
  - CONJOINED TWINS [None]
  - DRUG EXPOSURE DURING PREGNANCY [None]
